FAERS Safety Report 7348057-2 (Version None)
Quarter: 2011Q1

REPORT INFORMATION
  Report Type: 
  Country: None (occurrence: None)
  Receive Date: 20110302
  Receipt Date: 20110217
  Transmission Date: 20110831
  Serious: Yes (Other)
  Sender: FDA-Public Use
  Company Number: PHBS2004TR04369

PATIENT
  Age: 72 Year
  Sex: Male

DRUGS (2)
  1. VISUDYNE [Suspect]
     Indication: CHOROIDAL NEOVASCULARISATION
     Dosage: 5 MG/M2 ONCE, IV
     Route: 042
  2. VISUDYNE [Suspect]
     Indication: MACULAR DEGENERATION
     Dosage: 5 MG/M2 ONCE, IV
     Route: 042

REACTIONS (6)
  - MACULAR OEDEMA [None]
  - CHOROIDAL NEOVASCULARISATION [None]
  - VISUAL ACUITY REDUCED [None]
  - RETINAL HAEMORRHAGE [None]
  - CONDITION AGGRAVATED [None]
  - RETINAL PIGMENT EPITHELIAL TEAR [None]
